FAERS Safety Report 19399764 (Version 3)
Quarter: 2023Q2

REPORT INFORMATION
  Report Type: Spontaneous
  Country: IT (occurrence: IT)
  Receive Date: 20210610
  Receipt Date: 20230403
  Transmission Date: 20230722
  Serious: Yes (Other)
  Sender: FDA-Public Use
  Company Number: IT-PFIZER INC-2020511885

PATIENT
  Sex: Female

DRUGS (6)
  1. CISPLATIN [Suspect]
     Active Substance: CISPLATIN
     Indication: Adrenocortical carcinoma
     Dosage: UNK, 6 CYCLES OF EAP
     Route: 065
  2. ETOPOSIDE [Suspect]
     Active Substance: ETOPOSIDE
     Indication: Adrenocortical carcinoma
     Dosage: UNK, 6 CYCLES OF EAP
     Route: 065
  3. ADRIAMYCIN [Suspect]
     Active Substance: DOXORUBICIN HYDROCHLORIDE
     Indication: Adrenocortical carcinoma
     Dosage: UNK UNK, 6 CYCLES OF EAP
     Route: 065
  4. MITOTANE [Concomitant]
     Active Substance: MITOTANE
     Indication: Adrenocortical carcinoma
     Dosage: 2 GRAM, QD
     Route: 065
  5. MITOTANE [Concomitant]
     Active Substance: MITOTANE
     Dosage: 4 G, DAILY
     Route: 065
  6. MITOTANE [Concomitant]
     Active Substance: MITOTANE
     Dosage: 4 G, DAILY
     Route: 065

REACTIONS (5)
  - Leukopenia [Unknown]
  - Anaemia [Unknown]
  - Vomiting [Unknown]
  - Nausea [Unknown]
  - Product use in unapproved indication [Recovered/Resolved]
